FAERS Safety Report 11416600 (Version 2)
Quarter: 2016Q2

REPORT INFORMATION
  Report Type: Spontaneous
  Country: US (occurrence: US)
  Receive Date: 20150825
  Receipt Date: 20160429
  Transmission Date: 20160815
  Serious: Yes (Hospitalization, Disabling)
  Sender: FDA-Public Use
  Company Number: US-ENDO PHARMACEUTICALS INC.-201403105

PATIENT
  Age: 58 Year
  Sex: Male
  Weight: 115.77 kg

DRUGS (10)
  1. VITAMIN D [Concomitant]
     Active Substance: CHOLECALCIFEROL
     Indication: PRODUCT USED FOR UNKNOWN INDICATION
     Route: 065
  2. ANDROGEL [Suspect]
     Active Substance: TESTOSTERONE
     Indication: LIBIDO DECREASED
     Route: 065
     Dates: start: 2011, end: 2012
  3. TESTOSTERONE. [Suspect]
     Active Substance: TESTOSTERONE
     Indication: ANDROGEN REPLACEMENT THERAPY
     Route: 065
  4. TESTIM [Suspect]
     Active Substance: TESTOSTERONE
     Indication: ANDROGEN REPLACEMENT THERAPY
     Route: 062
     Dates: start: 2007, end: 2012
  5. ANDROGEL [Suspect]
     Active Substance: TESTOSTERONE
     Indication: ASTHENIA
     Route: 061
     Dates: start: 2011, end: 2012
  6. ANDROGEL [Suspect]
     Active Substance: TESTOSTERONE
     Indication: MUSCLE ATROPHY
  7. LISINOPRIL. [Concomitant]
     Active Substance: LISINOPRIL
     Indication: PRODUCT USED FOR UNKNOWN INDICATION
     Route: 065
  8. TESTIM [Suspect]
     Active Substance: TESTOSTERONE
     Indication: ASTHENIA
     Route: 062
     Dates: start: 2007, end: 2011
  9. ZETIA [Concomitant]
     Active Substance: EZETIMIBE
     Indication: PRODUCT USED FOR UNKNOWN INDICATION
     Route: 065
  10. TESTIM [Suspect]
     Active Substance: TESTOSTERONE
     Indication: MUSCLE ATROPHY

REACTIONS (2)
  - Acute myocardial infarction [Not Recovered/Not Resolved]
  - Coronary artery disease [Not Recovered/Not Resolved]

NARRATIVE: CASE EVENT DATE: 20120522
